FAERS Safety Report 4306383-5 (Version None)
Quarter: 2004Q1

REPORT INFORMATION
  Report Type: 
  Country: None (occurrence: None)
  Receive Date: 20040225
  Receipt Date: 20030616
  Transmission Date: 20041129
  Serious: No
  Sender: FDA-Public Use
  Company Number: US-BRISTOL-MYERS SQUIBB COMPANY-12306197

PATIENT
  Age: 60 Year
  Sex: Female
  Weight: 58 kg

DRUGS (5)
  1. EXCEDRIN ES TABS [Suspect]
     Indication: HEADACHE
     Dosage: DOSE VALUE:  ONE OR TWO DOSAGE FORM
     Route: 048
  2. NEPTAZANE [Concomitant]
  3. TIMOPTIC DROPS [Concomitant]
  4. PHOSPHOLINE IODIDE [Concomitant]
  5. METROCREAM [Concomitant]

REACTIONS (4)
  - DYSPEPSIA [None]
  - MUSCLE TWITCHING [None]
  - NAUSEA [None]
  - TENSION [None]
